FAERS Safety Report 7170004-7 (Version None)
Quarter: 2010Q4

REPORT INFORMATION
  Report Type: 
  Country: None (occurrence: None)
  Receive Date: 20101206
  Receipt Date: 20101126
  Transmission Date: 20110411
  Serious: Yes (Hospitalization)
  Sender: FDA-Public Use
  Company Number: GER/GBR/10/0016806

PATIENT
  Age: 28 Year
  Sex: Female

DRUGS (2)
  1. OLANZAPINE [Suspect]
     Indication: PRODUCT USED FOR UNKNOWN INDICATION
     Dosage: 2000 MG, 1 IN 1 TOTAL;
  2. SERTRALINE (SERTRALINE) [Suspect]
     Indication: PRODUCT USED FOR UNKNOWN INDICATION
     Dosage: 420 MG, 1 IN 1 TOTAL;

REACTIONS (12)
  - AUTONOMIC NERVOUS SYSTEM IMBALANCE [None]
  - CONTINUOUS HAEMODIAFILTRATION [None]
  - EXTRAPYRAMIDAL DISORDER [None]
  - HYPERTENSION [None]
  - HYPOREFLEXIA [None]
  - INTENTIONAL OVERDOSE [None]
  - MENTAL DISORDER [None]
  - MYOCLONUS [None]
  - NEUROLEPTIC MALIGNANT SYNDROME [None]
  - SINUS TACHYCARDIA [None]
  - STAPHYLOCOCCAL INFECTION [None]
  - SUICIDE ATTEMPT [None]
